FAERS Safety Report 7054464-8 (Version None)
Quarter: 2010Q4

REPORT INFORMATION
  Report Type: 
  Country: None (occurrence: None)
  Receive Date: 20101020
  Receipt Date: 20101005
  Transmission Date: 20110411
  Serious: Yes (Hospitalization, Other)
  Sender: FDA-Public Use
  Company Number: PHHY2010US54179

PATIENT
  Sex: Male
  Weight: 53.81 kg

DRUGS (16)
  1. EXJADE [Suspect]
     Indication: MYELODYSPLASTIC SYNDROME
     Dosage: 1000 MG DAILY
     Route: 048
     Dates: start: 20090408
  2. EXJADE [Suspect]
     Indication: HAEMOCHROMATOSIS
     Dosage: 1000 MG DAILY
     Route: 048
     Dates: start: 20100602
  3. EXJADE [Suspect]
     Dosage: UNK
     Dates: start: 20100602
  4. EXJADE [Suspect]
     Dosage: 500 MG, TID
     Dates: start: 20100503, end: 20100726
  5. EXJADE [Suspect]
     Dosage: 500 MG, TID
     Dates: start: 20100802, end: 20100816
  6. EXJADE [Suspect]
     Dosage: 500 MG, QD
  7. TERAZOSIN HCL [Concomitant]
  8. LEVOTHYROXINE [Concomitant]
     Dosage: UNK
  9. COLCHICINE [Concomitant]
     Dosage: 0.6 MG, QOD
  10. SIMVASTATIN [Concomitant]
     Dosage: 40 MG DAILY
  11. PREDNISONE TAB [Concomitant]
     Indication: IDIOPATHIC THROMBOCYTOPENIC PURPURA
     Dosage: 5 MG, QD
  12. PULMICORT [Concomitant]
     Dosage: 0.5 MG, BID
  13. SPIRIVA [Concomitant]
     Dosage: ONCE A DAY
  14. AMIODARONE HCL [Concomitant]
     Dosage: 200 MG, QD
  15. FLOMAX [Concomitant]
     Dosage: 0.4 MG DAILY
  16. CALCIUM [Concomitant]
     Dosage: 600 MG, QD

REACTIONS (19)
  - ABDOMINAL PAIN LOWER [None]
  - ASTHENIA [None]
  - BLOOD CREATININE INCREASED [None]
  - BLOOD PRESSURE DECREASED [None]
  - CHLAMYDIAL INFECTION [None]
  - DECREASED APPETITE [None]
  - DIARRHOEA [None]
  - DIVERTICULITIS [None]
  - DYSPNOEA [None]
  - GASTROINTESTINAL OEDEMA [None]
  - HYPOXIA [None]
  - LEUKOCYTOSIS [None]
  - LUNG INFILTRATION [None]
  - NEPHROLITHIASIS [None]
  - OXYGEN SATURATION DECREASED [None]
  - PLATELET COUNT DECREASED [None]
  - PNEUMONIA STAPHYLOCOCCAL [None]
  - RENAL CYST [None]
  - WHITE BLOOD CELL COUNT INCREASED [None]
